FAERS Safety Report 7335408-8 (Version None)
Quarter: 2011Q1

REPORT INFORMATION
  Report Type: 
  Country: None (occurrence: None)
  Receive Date: 20110307
  Receipt Date: 20110221
  Transmission Date: 20110831
  Serious: Yes (Other)
  Sender: FDA-Public Use
  Company Number: PHHY2011NO15045

PATIENT

DRUGS (2)
  1. ABATACEPT [Suspect]
     Indication: RHEUMATOID ARTHRITIS
  2. METHOTREXATE [Suspect]

REACTIONS (11)
  - PNEUMONIA [None]
  - HAEMATOMA [None]
  - DRY EYE [None]
  - FATIGUE [None]
  - VISUAL ACUITY REDUCED [None]
  - DIZZINESS [None]
  - MENSTRUAL DISORDER [None]
  - FOOT DEFORMITY [None]
  - FLUSHING [None]
  - HEADACHE [None]
  - WOUND INFECTION [None]
